FAERS Safety Report 17795866 (Version 1)
Quarter: 2020Q2

REPORT INFORMATION
  Report Type: Spontaneous
  Country: JP (occurrence: JP)
  Receive Date: 20200516
  Receipt Date: 20200516
  Transmission Date: 20200714
  Serious: Yes (Hospitalization)
  Sender: FDA-Public Use
  Company Number: JP-MICRO LABS LIMITED-ML2020-01531

PATIENT
  Age: 85 Year
  Sex: Male

DRUGS (5)
  1. APIXABAN [Suspect]
     Active Substance: APIXABAN
     Indication: ATRIAL THROMBOSIS
     Dosage: 5 MG/DAY FOR A MONTH FOLLOWED BY 10 MG/DAY FOR FOUR MONTHS
  2. ENALAPRIL [Concomitant]
     Active Substance: ENALAPRIL
     Indication: ATRIAL THROMBOSIS
  3. DIURETICS [Concomitant]
     Active Substance: UNSPECIFIED INGREDIENT
     Indication: ATRIAL THROMBOSIS
     Dosage: LOW DOSE
  4. APIXABAN [Suspect]
     Active Substance: APIXABAN
     Dosage: SWITCHED BACK TO 10 MG/DAY OF APIXABAN
  5. CARVEDILOL. [Concomitant]
     Active Substance: CARVEDILOL
     Indication: ATRIAL THROMBOSIS

REACTIONS (1)
  - Drug ineffective [Recovering/Resolving]
